FAERS Safety Report 11063811 (Version 2)
Quarter: 2016Q1

REPORT INFORMATION
  Report Type: Spontaneous
  Country: NO (occurrence: NO)
  Receive Date: 20150424
  Receipt Date: 20160202
  Transmission Date: 20160525
  Serious: Yes (Hospitalization, Disabling)
  Sender: FDA-Public Use
  Company Number: NO-CELGENE-NOR-2015040271

PATIENT
  Age: 59 Year
  Sex: Male

DRUGS (3)
  1. CARBOPLATIN. [Suspect]
     Active Substance: CARBOPLATIN
     Indication: OESOPHAGEAL CARCINOMA
     Route: 042
     Dates: start: 201309, end: 201311
  2. DEXAMETHASONE. [Concomitant]
     Active Substance: DEXAMETHASONE
     Indication: PROPHYLAXIS OF NAUSEA AND VOMITING
     Dosage: 16 MILLIGRAM
     Route: 048
     Dates: start: 201309, end: 201311
  3. ABRAXANE [Suspect]
     Active Substance: PACLITAXEL
     Indication: OESOPHAGEAL CARCINOMA
     Route: 042
     Dates: start: 201309, end: 201311

REACTIONS (3)
  - Decubitus ulcer [Recovering/Resolving]
  - Neuropathy peripheral [Not Recovered/Not Resolved]
  - Osteomyelitis chronic [Not Recovered/Not Resolved]

NARRATIVE: CASE EVENT DATE: 201311
